FAERS Safety Report 5537747-X (Version None)
Quarter: 2007Q4

REPORT INFORMATION
  Report Type: 
  Country: None (occurrence: None)
  Receive Date: 20071207
  Receipt Date: 20071126
  Transmission Date: 20080405
  Serious: Yes (Hospitalization, Other)
  Sender: FDA-Public Use
  Company Number: US-PFIZER INC-2007099375

PATIENT
  Age: 43 Year
  Sex: Female

DRUGS (2)
  1. NEURONTIN [Suspect]
  2. LYRICA [Suspect]

REACTIONS (5)
  - CHROMATURIA [None]
  - DEMYELINATION [None]
  - ENZYME ABNORMALITY [None]
  - HEPATIC ENZYME INCREASED [None]
  - SCHIZOPHRENIA [None]
